FAERS Safety Report 6529311-0 (Version None)
Quarter: 2010Q1

REPORT INFORMATION
  Report Type: 
  Country: None (occurrence: None)
  Receive Date: 20100107
  Receipt Date: 20091230
  Transmission Date: 20100710
  Serious: Yes (Hospitalization)
  Sender: FDA-Public Use
  Company Number: PHHY2009GB57027

PATIENT
  Sex: Male
  Weight: 139.7 kg

DRUGS (6)
  1. CLOZARIL [Suspect]
     Indication: SCHIZOPHRENIA
     Dosage: UNK
     Dates: start: 20050707
  2. CLOZARIL [Suspect]
     Dosage: 650 MG DAILY
  3. DEPAKOTE [Concomitant]
     Indication: SCHIZOAFFECTIVE DISORDER
     Dosage: 750 MG DAILY
     Route: 048
  4. ATORVASTATIN CALCIUM [Concomitant]
     Indication: LIPIDS INCREASED
     Dosage: 40 MG DAILY
  5. CIPROFIBRATE [Concomitant]
     Indication: LIPIDS INCREASED
     Dosage: 100 MG DAILY
     Route: 048
  6. DOXYCYCLINE [Concomitant]
     Dosage: 100 MG DAILY

REACTIONS (1)
  - LOWER RESPIRATORY TRACT INFECTION [None]
